FAERS Safety Report 14228800 (Version 1)
Quarter: 2017Q4

REPORT INFORMATION
  Report Type: Spontaneous
  Country: CA (occurrence: CA)
  Receive Date: 20171128
  Receipt Date: 20171128
  Transmission Date: 20180321
  Serious: Yes (Other)
  Sender: FDA-Public Use
  Company Number: CA-ORION CORPORATION ORION PHARMA-TREX2017-3825

PATIENT
  Sex: Female

DRUGS (3)
  1. METHOTREXATE (TRADE NAME UNKNOWN) [Suspect]
     Active Substance: METHOTREXATE
     Indication: RHEUMATOID ARTHRITIS
     Dosage: VARYING DOSE OVER THE YEARS, 7.5 MG TO 22.5 MG
     Route: 065
     Dates: end: 201502
  2. HUMIRA [Suspect]
     Active Substance: ADALIMUMAB
     Indication: RHEUMATOID ARTHRITIS
     Route: 058
     Dates: start: 200508, end: 201502
  3. HUMIRA [Suspect]
     Active Substance: ADALIMUMAB
     Dosage: CYCLIC
     Route: 058
     Dates: start: 201508, end: 201602

REACTIONS (7)
  - Pneumonia [Unknown]
  - Localised infection [Unknown]
  - Rheumatoid arthritis [Unknown]
  - Septic arthritis staphylococcal [Unknown]
  - Renal failure [Unknown]
  - Infection [Unknown]
  - Bronchiectasis [Unknown]
